FAERS Safety Report 10272934 (Version 1)
Quarter: 2014Q2

REPORT INFORMATION
  Report Type: Spontaneous
  Country: US (occurrence: None)
  Receive Date: 20140627
  Receipt Date: 20140627
  Transmission Date: 20141212
  Serious: Yes (Hospitalization)
  Sender: FDA-Public Use
  Company Number: None

PATIENT
  Age: 70 Year
  Sex: Male
  Weight: 78.02 kg

DRUGS (15)
  1. IBRUTINIB PCI32765, 420MG, PHARMACYCLICS [Suspect]
     Indication: CHRONIC LYMPHOCYTIC LEUKAEMIA
     Route: 048
     Dates: start: 20130605, end: 20140611
  2. VALACYCLOVIR [Concomitant]
  3. KETCOCONAZOLE  2% EX CREA [Concomitant]
  4. CIPROFLOXACIN [Concomitant]
  5. BLACK CURRANT SEED OIL [Concomitant]
  6. ATORVASTATIN [Concomitant]
  7. AMLODIPINE [Concomitant]
  8. OSU-11133 [Concomitant]
  9. CALCIUM  CARBONATE (TUMS) [Concomitant]
  10. CLOPIDOGREL (PLAVIX) [Concomitant]
  11. METOPROLOL-XL (TOPROL XL) [Concomitant]
  12. LISINOPRIL [Concomitant]
  13. PANTOPRAZOLE [Concomitant]
  14. LORAZEPAM (ATIVAN) [Concomitant]
  15. GLUCOSAMINE CHONDROITIN COMPLX [Concomitant]

REACTIONS (8)
  - Lymphocytosis [None]
  - Anaemia [None]
  - Muscular weakness [None]
  - Hypoaesthesia [None]
  - Movement disorder [None]
  - Headache [None]
  - Subdural haematoma [None]
  - Subarachnoid haemorrhage [None]
